FAERS Safety Report 4449060-2 (Version None)
Quarter: 2004Q3

REPORT INFORMATION
  Report Type: 
  Country: None (occurrence: None)
  Receive Date: 20040909
  Receipt Date: 20040825
  Transmission Date: 20050211
  Serious: Yes (Other)
  Sender: FDA-Public Use
  Company Number: 175817

PATIENT
  Age: 53 Year
  Sex: Female

DRUGS (1)
  1. AVONEX [Suspect]
     Indication: MULTIPLE SCLEROSIS
     Dosage: 30 MCG QW IM
     Route: 030

REACTIONS (9)
  - AMNESIA [None]
  - ARTHRITIS [None]
  - CARCINOMA [None]
  - COLITIS [None]
  - DIZZINESS [None]
  - MALAISE [None]
  - MULTIPLE SCLEROSIS [None]
  - STRESS SYMPTOMS [None]
  - SUICIDAL IDEATION [None]
